FAERS Safety Report 6450596-3 (Version None)
Quarter: 2009Q4

REPORT INFORMATION
  Report Type: 
  Country: None (occurrence: None)
  Receive Date: 20091123
  Receipt Date: 20091106
  Transmission Date: 20100525
  Serious: Yes (Other)
  Sender: FDA-Public Use
  Company Number: SE-BAYER-200928365GPV

PATIENT
  Age: 31 Year
  Sex: Female

DRUGS (1)
  1. MIRENA [Suspect]
     Indication: DRUG USE FOR UNKNOWN INDICATION
     Route: 015
     Dates: start: 20050101

REACTIONS (6)
  - COMPLICATION OF DEVICE INSERTION [None]
  - DEVICE DISLOCATION [None]
  - DEVICE EXPULSION [None]
  - MEDICAL DEVICE COMPLICATION [None]
  - PREGNANCY WITH CONTRACEPTIVE DEVICE [None]
  - VENOUS THROMBOSIS LIMB [None]
